FAERS Safety Report 7598000-6 (Version None)
Quarter: 2011Q3

REPORT INFORMATION
  Report Type: 
  Country: None (occurrence: None)
  Receive Date: 20110708
  Receipt Date: 20110621
  Transmission Date: 20111222
  Serious: No
  Sender: FDA-Public Use
  Company Number: US-B.I. PHARMACEUTICALS,INC./RIDGEFIELD-2011-BP-06704BP

PATIENT
  Sex: Male
  Weight: 117.48 kg

DRUGS (13)
  1. CARVEDILOL [Concomitant]
     Dosage: 100 MG
     Route: 048
  2. FAMOTIDINE [Concomitant]
     Dosage: 40 MG
     Route: 048
  3. FISH OIL [Concomitant]
     Dosage: 2000 MG
     Route: 048
  4. MAGNESIUM [Concomitant]
     Route: 048
  5. OMEPRAZOLE DR [Concomitant]
     Dosage: 40 MG
     Route: 048
  6. FLUTICASONE PROPIONATE [Concomitant]
     Dosage: 0.1 MG
     Route: 045
  7. ACETAMINOPHEN [Concomitant]
  8. PRADAXA [Suspect]
     Indication: CEREBROVASCULAR ACCIDENT PROPHYLAXIS
     Dosage: 300 MG
     Route: 048
     Dates: start: 20110217
  9. LISINOPRIL AND HYDROCHLOROTHIAZIDE [Concomitant]
     Route: 048
  10. LANSOPRAZOLE [Concomitant]
     Dosage: 30 MG
     Route: 048
  11. LOVASTATIN [Concomitant]
     Dosage: 40 MG
     Route: 048
  12. ASPIRIN [Concomitant]
     Dosage: 81 MG
     Route: 048
  13. METOCLOPRAMIDE [Concomitant]
     Dosage: 20 MG
     Route: 048

REACTIONS (6)
  - DYSPEPSIA [None]
  - DIZZINESS [None]
  - NAUSEA [None]
  - ABDOMINAL PAIN UPPER [None]
  - EPIGASTRIC DISCOMFORT [None]
  - ABDOMINAL DISCOMFORT [None]
